FAERS Safety Report 8542886-5 (Version None)
Quarter: 2012Q3

REPORT INFORMATION
  Report Type: 
  Country: None (occurrence: None)
  Receive Date: 20120727
  Receipt Date: 20120718
  Transmission Date: 20120928
  Serious: No
  Sender: FDA-Public Use
  Company Number: US-009507513-2011SP040060

PATIENT

DRUGS (13)
  1. VITAMIN D (UNSPECIFIED) [Concomitant]
     Indication: VITAMIN D DEFICIENCY
     Dosage: 4000 IU, QD
     Route: 048
  2. MICRONOR 28 [Concomitant]
     Indication: CONTRACEPTION
     Dosage: 0.35 MG, QD
     Route: 048
     Dates: start: 20110401, end: 20110428
  3. PRENATE [Concomitant]
     Indication: PREGNANCY
     Route: 048
  4. INFLUENZA VIRUS VACCINE INACTIVATED (UNSPECIFIED) [Concomitant]
     Indication: IMMUNISATION
     Dosage: 1 DF, ONCE
     Route: 030
     Dates: start: 20110928, end: 20110928
  5. FERROUS SULFATE TAB [Concomitant]
     Dosage: UNK
  6. COLACE [Concomitant]
     Indication: CONSTIPATION
     Dosage: 200 MG, QD
     Route: 048
     Dates: start: 20101221, end: 20110424
  7. BENADRYL [Concomitant]
     Indication: HYPERSENSITIVITY
     Dosage: UNK
     Route: 048
     Dates: start: 20111128
  8. IMPLANON [Suspect]
     Indication: CONTRACEPTION
     Dosage: 1 DF, UNK
     Route: 059
     Dates: start: 20110726, end: 20110809
  9. FERROUS SULFATE TAB [Concomitant]
     Dosage: 325 MG, QD
     Route: 048
     Dates: start: 20101104, end: 20101223
  10. DOCOSAHEXAENOIC ACID [Concomitant]
     Indication: PREGNANCY
     Dosage: 1 DF, QD
     Route: 048
     Dates: start: 20101104, end: 20110830
  11. CLARITIN [Concomitant]
     Indication: HYPERSENSITIVITY
     Dosage: UNK
     Route: 048
     Dates: start: 20111128
  12. IMPLANON [Suspect]
     Dosage: 68 MG/3 YEAR
     Route: 059
     Dates: start: 20100628, end: 20101104
  13. OMEGA-3 MARINE TRIGLYCERIDES [Concomitant]
     Route: 048

REACTIONS (1)
  - PREGNANCY WITH IMPLANT CONTRACEPTIVE [None]
